FAERS Safety Report 4873743-3 (Version None)
Quarter: 2006Q1

REPORT INFORMATION
  Report Type: 
  Country: None (occurrence: None)
  Receive Date: 20060104
  Receipt Date: 20051220
  Transmission Date: 20060701
  Serious: Yes (Death, Hospitalization, Other)
  Sender: FDA-Public Use
  Company Number: US-2005-009610

PATIENT
  Age: 54 Year
  Sex: Male
  Weight: 86.1 kg

DRUGS (15)
  1. BETASERON [Suspect]
     Indication: RELAPSING-REMITTING MULTIPLE SCLEROSIS
     Dosage: SUBCUTANEOUS
     Route: 058
     Dates: start: 19940101, end: 20050107
  2. MULTIVITAMINS (RETINOL, PANTHENOL) [Concomitant]
  3. COREG [Concomitant]
  4. DETROL-SLOW RELEASE(TOLTERODINE L-TARTRATE) [Concomitant]
  5. EFFEXOR XR [Concomitant]
  6. DEMADEX [Concomitant]
  7. ZOLOFT [Concomitant]
  8. NEURONTIN [Concomitant]
  9. KLONOPIN [Concomitant]
  10. COUMADIN [Concomitant]
  11. MACRODANTIN [Concomitant]
  12. LEVAQUIN [Concomitant]
  13. MIRALAX [Concomitant]
  14. PROVIGIL [Concomitant]
  15. K-DUR 10 [Concomitant]

REACTIONS (12)
  - ASTHENIA [None]
  - CARDIAC FAILURE CONGESTIVE [None]
  - CARDIOMYOPATHY [None]
  - CONDITION AGGRAVATED [None]
  - ENCEPHALOPATHY [None]
  - FATIGUE [None]
  - HYPOTENSION [None]
  - PATHOGEN RESISTANCE [None]
  - PENILE ULCERATION [None]
  - RELAPSING-REMITTING MULTIPLE SCLEROSIS [None]
  - SEPSIS [None]
  - STAPHYLOCOCCAL INFECTION [None]
